FAERS Safety Report 15602952 (Version 1)
Quarter: 2018Q4

REPORT INFORMATION
  Report Type: Spontaneous
  Country: US (occurrence: US)
  Receive Date: 20181109
  Receipt Date: 20181109
  Transmission Date: 20190205
  Serious: Yes (Hospitalization)
  Sender: FDA-Public Use
  Company Number: US-ASTRAZENECA-2018SF45482

PATIENT
  Sex: Female

DRUGS (5)
  1. BRILINTA [Suspect]
     Active Substance: TICAGRELOR
     Indication: STENT PLACEMENT
     Dosage: 180.0MG ONCE/SINGLE ADMINISTRATION
     Route: 050
     Dates: start: 20181102
  2. ASPIRIN. [Concomitant]
     Active Substance: ASPIRIN
     Dosage: 324.0MG ONCE/SINGLE ADMINISTRATION
     Route: 065
     Dates: start: 20181031
  3. LIPITOR [Concomitant]
     Active Substance: ATORVASTATIN CALCIUM
     Dosage: 40.0MG UNKNOWN
     Route: 065
  4. ASPIRIN. [Concomitant]
     Active Substance: ASPIRIN
     Dosage: 81.0MG ONCE/SINGLE ADMINISTRATION
     Route: 065
     Dates: start: 20181031
  5. BRILINTA [Suspect]
     Active Substance: TICAGRELOR
     Indication: STENT PLACEMENT
     Route: 048
     Dates: start: 20181031

REACTIONS (1)
  - Coronary artery reocclusion [Unknown]

NARRATIVE: CASE EVENT DATE: 20181102
